FAERS Safety Report 4640228-9 (Version None)
Quarter: 2005Q2

REPORT INFORMATION
  Report Type: 
  Country: None (occurrence: None)
  Receive Date: 20050419
  Receipt Date: 20050413
  Transmission Date: 20051028
  Serious: Yes (Hospitalization)
  Sender: FDA-Public Use
  Company Number: MEDI-0003129

PATIENT
  Age: 55 Year
  Sex: Female
  Weight: 53.0709 kg

DRUGS (4)
  1. ETHYOL [Suspect]
     Indication: RADIOTHERAPY
     Dosage: 500 MG, 5 IN 1 WK, INTRAVENOUS
     Route: 042
     Dates: start: 20050323, end: 20050404
  2. RADIATION THERAPY [Concomitant]
  3. COMPAZINE [Concomitant]
  4. ZOFRAN [Concomitant]

REACTIONS (17)
  - BACK PAIN [None]
  - CHILLS [None]
  - CONSTIPATION [None]
  - COUGH [None]
  - DECREASED APPETITE [None]
  - DEHYDRATION [None]
  - FLUSHING [None]
  - LETHARGY [None]
  - MYALGIA [None]
  - NAUSEA [None]
  - NEUTROPHIL COUNT INCREASED [None]
  - ORAL CANDIDIASIS [None]
  - ORTHOSTATIC HYPOTENSION [None]
  - PYREXIA [None]
  - STOMATITIS [None]
  - VOMITING [None]
  - WEIGHT DECREASED [None]
